FAERS Safety Report 8709370 (Version 2)
Quarter: 2012Q4

REPORT INFORMATION
  Report Type: 
  Country: US (occurrence: US)
  Receive Date: 20120806
  Receipt Date: 20120919
  Transmission Date: 20130627
  Serious: Yes (Other)
  Sender: FDA-Public Use
  Company Number: US-BAYER-2012-077803

PATIENT
  Age: 54 None
  Sex: Female

DRUGS (1)
  1. BETASERON [Suspect]
     Indication: RELAPSING-REMITTING MULTIPLE SCLEROSIS
     Dosage: UNK
     Dates: start: 2002, end: 201203

REACTIONS (3)
  - Toxoplasmosis [Recovered/Resolved]
  - Toxoplasmosis [Recovered/Resolved]
  - Decreased immune responsiveness [None]
